FAERS Safety Report 8342413-1 (Version None)
Quarter: 2012Q2

REPORT INFORMATION
  Report Type: 
  Country: None (occurrence: None)
  Receive Date: 20120508
  Receipt Date: 20120426
  Transmission Date: 20120825
  Serious: No
  Sender: FDA-Public Use
  Company Number: US-BIOGENIDEC-2012BI012992

PATIENT
  Sex: Female

DRUGS (1)
  1. TYSABRI [Suspect]
     Indication: MULTIPLE SCLEROSIS
     Route: 042
     Dates: start: 20090909

REACTIONS (6)
  - TENDONITIS [None]
  - VENOMOUS STING [None]
  - ARTHRITIS [None]
  - INFECTION [None]
  - PAIN IN EXTREMITY [None]
  - ECZEMA [None]
